FAERS Safety Report 24957976 (Version 1)
Quarter: 2025Q1

REPORT INFORMATION
  Report Type: Report from Study
  Country: DE (occurrence: DE)
  Receive Date: 20250212
  Receipt Date: 20250212
  Transmission Date: 20250408
  Serious: Yes (Hospitalization)
  Sender: ROCHE
  Company Number: DE-ML39632-2424783-0

PATIENT
  Age: 63 Year
  Sex: Male
  Weight: 100 kg

DRUGS (17)
  1. OCREVUS [Suspect]
     Active Substance: OCRELIZUMAB
     Indication: Relapsing multiple sclerosis
     Route: 042
     Dates: start: 20191111, end: 20191125
  2. OCREVUS [Suspect]
     Active Substance: OCRELIZUMAB
     Route: 042
     Dates: start: 20200519
  3. SILODOSIN [Concomitant]
     Active Substance: SILODOSIN
     Route: 048
  4. Hylo Care Augentropfen [Concomitant]
     Indication: Dry eye
     Route: 047
     Dates: start: 2019
  5. DULOXETINE [Concomitant]
     Active Substance: DULOXETINE
     Indication: Fatigue
     Route: 048
     Dates: start: 201912
  6. B1 KATTWIGA [Concomitant]
     Route: 048
  7. PREDNISOLONE [Concomitant]
     Active Substance: PREDNISOLONE
     Route: 042
     Dates: start: 20191111
  8. NABIXIMOLS [Concomitant]
     Active Substance: NABIXIMOLS
     Indication: Muscle spasticity
     Dates: start: 202304
  9. Tamsuolosin [Concomitant]
     Indication: Bladder dysfunction
     Route: 048
     Dates: start: 202011
  10. EBASTINE [Concomitant]
     Active Substance: EBASTINE
     Route: 048
     Dates: start: 20191110
  11. PALEXIA [Concomitant]
     Active Substance: TAPENTADOL HYDROCHLORIDE
     Indication: Pain
     Route: 048
     Dates: start: 202304
  12. CHOLECALCIFEROL [Concomitant]
     Active Substance: CHOLECALCIFEROL
     Indication: Vitamin supplementation
     Route: 048
     Dates: start: 201909
  13. BionTech COVID-19-Impfstoff [Concomitant]
     Indication: COVID-19 prophylaxis
     Route: 030
     Dates: start: 20210505, end: 20210505
  14. BionTech COVID-19-Impfstoff [Concomitant]
     Route: 030
     Dates: start: 20210526, end: 20210526
  15. Laxans Tropfen [Concomitant]
     Dates: start: 20230106
  16. HYDROMORPHONE [Concomitant]
     Active Substance: HYDROMORPHONE
     Route: 048
     Dates: start: 20230106
  17. LACTULOSE [Concomitant]
     Active Substance: LACTULOSE
     Route: 048

REACTIONS (1)
  - COVID-19 [Recovered/Resolved]

NARRATIVE: CASE EVENT DATE: 20241029
